FAERS Safety Report 9803173 (Version 1)
Quarter: 2014Q1

REPORT INFORMATION
  Report Type: Report from Study
  Country: US (occurrence: US)
  Receive Date: 20140108
  Receipt Date: 20140108
  Transmission Date: 20141002
  Serious: Yes (Hospitalization)
  Sender: FDA-Public Use
  Company Number: US-JNJFOC-20140100103

PATIENT
  Sex: Female
  Weight: 108.86 kg

DRUGS (3)
  1. REMICADE [Suspect]
     Indication: COLITIS ULCERATIVE
     Route: 042
  2. LEVOTHYROXINE [Concomitant]
     Indication: THYROID DISORDER
     Route: 048
  3. TRIAMTERENE / HCTZ [Concomitant]
     Indication: BLOOD PRESSURE
     Dosage: 37.5-25MG ONCE DAILY
     Route: 048

REACTIONS (1)
  - Arthritis [Unknown]
